FAERS Safety Report 5362857-X (Version None)
Quarter: 2007Q2

REPORT INFORMATION
  Report Type: 
  Country: None (occurrence: None)
  Receive Date: 20070619
  Receipt Date: 19951004
  Transmission Date: 20071010
  Serious: Yes (Death)
  Sender: FDA-Public Use
  Company Number: US-MERCK-94120904

PATIENT
  Age: 55 Year
  Sex: Male

DRUGS (4)
  1. VASOTEC [Concomitant]
     Route: 048
  2. MEVACOR [Suspect]
     Indication: HYPERCHOLESTEROLAEMIA
     Route: 048
     Dates: start: 19910101, end: 19941001
  3. LOPRESSOR [Concomitant]
     Route: 065
  4. ASPIRIN [Concomitant]
     Route: 065

REACTIONS (5)
  - AMYOTROPHIC LATERAL SCLEROSIS [None]
  - ASTHENIA [None]
  - BLOOD CREATINE PHOSPHOKINASE INCREASED [None]
  - DYSPNOEA EXERTIONAL [None]
  - MUSCULAR WEAKNESS [None]
